FAERS Safety Report 6278032-0 (Version None)
Quarter: 2009Q3

REPORT INFORMATION
  Report Type: 
  Country: None (occurrence: None)
  Receive Date: 20090722
  Receipt Date: 20090710
  Transmission Date: 20100115
  Serious: Yes (Other)
  Sender: FDA-Public Use
  Company Number: PHHY2009JP26922

PATIENT
  Age: 53 Year
  Sex: Female

DRUGS (1)
  1. AREDIA [Suspect]
     Indication: HYPERCALCAEMIA

REACTIONS (10)
  - BLOOD CREATININE INCREASED [None]
  - FOCAL SEGMENTAL GLOMERULOSCLEROSIS [None]
  - HYPOALBUMINAEMIA [None]
  - METASTASES TO LIVER [None]
  - METASTASES TO LUNG [None]
  - NEPHROTIC SYNDROME [None]
  - PERICARDIAL DISEASE [None]
  - PLEURAL DISORDER [None]
  - PROTEIN URINE PRESENT [None]
  - RENAL IMPAIRMENT [None]
